FAERS Safety Report 8606304-0 (Version None)
Quarter: 2012Q3

REPORT INFORMATION
  Report Type: 
  Country: None (occurrence: None)
  Receive Date: 20120820
  Receipt Date: 20120816
  Transmission Date: 20120928
  Serious: Yes (Other)
  Sender: FDA-Public Use
  Company Number: CA-ROCHE-1103233

PATIENT
  Age: 70 Year

DRUGS (1)
  1. AVASTIN [Suspect]
     Indication: COLORECTAL CANCER
     Dates: start: 20111201, end: 20120401

REACTIONS (2)
  - DISEASE PROGRESSION [None]
  - CLOSTRIDIAL INFECTION [None]
